FAERS Safety Report 17338321 (Version 1)
Quarter: 2020Q1

REPORT INFORMATION
  Report Type: Spontaneous
  Country: US (occurrence: US)
  Receive Date: 20200128
  Receipt Date: 20200128
  Transmission Date: 20200409
  Serious: Yes (Other)
  Sender: FDA-Public Use
  Company Number: None

PATIENT
  Age: 51 Year
  Sex: Female

DRUGS (1)
  1. DERMASIL [Suspect]
     Active Substance: DIMETHICONE
     Indication: DRY SKIN
     Route: 061
     Dates: start: 20191211, end: 20191215

REACTIONS (2)
  - Burning sensation [None]
  - Urticaria [None]

NARRATIVE: CASE EVENT DATE: 20191211
